FAERS Safety Report 5504588-9 (Version None)
Quarter: 2007Q4

REPORT INFORMATION
  Report Type: 
  Country: None (occurrence: None)
  Receive Date: 20071101
  Receipt Date: 20071025
  Transmission Date: 20080405
  Serious: Yes (Hospitalization)
  Sender: FDA-Public Use
  Company Number: GB-ROXANE LABORATORIES, INC-2007-BP-23472RO

PATIENT
  Age: 64 Year
  Sex: Male

DRUGS (6)
  1. LITHIUM CARBONATE [Suspect]
     Indication: HYPOMANIA
  2. FUROSEMIDE [Suspect]
     Indication: DIURETIC THERAPY
  3. AMILORIDE HYDROCHLORIDE [Suspect]
     Indication: DIURETIC THERAPY
  4. RAMIPRIL [Concomitant]
  5. ANTIBIOTICS [Concomitant]
     Indication: INFECTION
  6. DDAVP (NEEDS NO REFRIGERATION) [Concomitant]
     Indication: NEPHROGENIC DIABETES INSIPIDUS

REACTIONS (12)
  - BLOOD CREATININE INCREASED [None]
  - BLOOD SODIUM INCREASED [None]
  - BLOOD UREA INCREASED [None]
  - BODY TEMPERATURE INCREASED [None]
  - CONFUSIONAL STATE [None]
  - NEPHROGENIC DIABETES INSIPIDUS [None]
  - POLYURIA [None]
  - RESPIRATORY FAILURE [None]
  - SEPSIS [None]
  - SOMNOLENCE [None]
  - THERAPEUTIC AGENT TOXICITY [None]
  - WHITE BLOOD CELL COUNT INCREASED [None]
